FAERS Safety Report 4919201-9 (Version None)
Quarter: 2006Q1

REPORT INFORMATION
  Report Type: 
  Country: None (occurrence: None)
  Receive Date: 20060113
  Receipt Date: 20051117
  Transmission Date: 20060701
  Serious: No
  Sender: FDA-Public Use
  Company Number: 2005SP004042

PATIENT
  Age: 31 Year
  Sex: Male
  Weight: 99.7913 kg

DRUGS (3)
  1. LUNESTA [Suspect]
     Indication: INSOMNIA
     Dosage: 4 MG; HS; ORAL
     Route: 048
     Dates: start: 20051101, end: 20051101
  2. PROPRANOLOL [Concomitant]
  3. EFFEXOR [Concomitant]

REACTIONS (1)
  - DRUG EFFECT DECREASED [None]
